FAERS Safety Report 7550838-7 (Version None)
Quarter: 2011Q2

REPORT INFORMATION
  Report Type: 
  Country: None (occurrence: None)
  Receive Date: 20110616
  Receipt Date: 20110615
  Transmission Date: 20111010
  Serious: Yes (Other)
  Sender: FDA-Public Use
  Company Number: US-PFIZER INC-2011120694

PATIENT
  Sex: Female
  Weight: 54.422 kg

DRUGS (11)
  1. KEPPRA [Concomitant]
     Dosage: UNK
  2. LEXAPRO [Concomitant]
     Dosage: UNK
  3. CLONAZEPAM [Concomitant]
     Dosage: UNK
  4. CHANTIX [Suspect]
     Indication: SMOKING CESSATION THERAPY
     Dosage: 0.5 MG, DAILY
     Route: 048
     Dates: start: 20110601, end: 20110605
  5. BONIVA [Concomitant]
     Indication: OSTEOPOROSIS
     Dosage: UNK
  6. ATENOLOL [Concomitant]
     Indication: BLOOD PRESSURE ABNORMAL
     Dosage: UNK
  7. VITAMIN D [Concomitant]
     Dosage: UNK
  8. MAGNESIUM OXIDE [Concomitant]
     Dosage: UNK
  9. PREMARIN [Concomitant]
     Dosage: UNK
  10. MACRODANTIN [Concomitant]
     Indication: BLADDER DISORDER
     Dosage: UNK
  11. MULTI-VITAMINS [Concomitant]
     Dosage: UNK

REACTIONS (4)
  - HALLUCINATION [None]
  - ABNORMAL DREAMS [None]
  - SOMNOLENCE [None]
  - DEPRESSED MOOD [None]
